FAERS Safety Report 24154055 (Version 1)
Quarter: 2024Q3

REPORT INFORMATION
  Report Type: Spontaneous
  Country: US (occurrence: US)
  Receive Date: 20240730
  Receipt Date: 20240730
  Transmission Date: 20241017
  Serious: No
  Sender: ABBVIE
  Company Number: US-ABBVIE-5854330

PATIENT
  Sex: Male

DRUGS (3)
  1. DIVALPROEX SODIUM [Suspect]
     Active Substance: DIVALPROEX SODIUM
     Indication: Affective disorder
     Dosage: FORM STRENGTH: 500 MG
     Route: 048
     Dates: end: 2023
  2. DIVALPROEX SODIUM [Suspect]
     Active Substance: DIVALPROEX SODIUM
     Indication: Affective disorder
     Dosage: FORM STRENGTH: 500 MG
     Route: 048
     Dates: start: 2023
  3. SEROQUEL [Suspect]
     Active Substance: QUETIAPINE FUMARATE
     Indication: Affective disorder
     Route: 065

REACTIONS (6)
  - Pain [Not Recovered/Not Resolved]
  - Weight increased [Unknown]
  - Dyspepsia [Recovered/Resolved]
  - Arthropathy [Not Recovered/Not Resolved]
  - Joint instability [Not Recovered/Not Resolved]
  - Abdominal pain upper [Recovered/Resolved]

NARRATIVE: CASE EVENT DATE: 20230101
